FAERS Safety Report 4721501-2 (Version None)
Quarter: 2005Q3

REPORT INFORMATION
  Report Type: 
  Country: None (occurrence: None)
  Receive Date: 20050721
  Receipt Date: 20041020
  Transmission Date: 20060218
  Serious: No
  Sender: FDA-Public Use
  Company Number: US-BRISTOL-MYERS SQUIBB COMPANY-12738829

PATIENT
  Age: 43 Year
  Sex: Male
  Weight: 69 kg

DRUGS (23)
  1. WARFARIN SODIUM [Suspect]
     Indication: THROMBOSIS
     Dosage: ^2.5 MG, 1 TABLET DAILY ALONG WITH WARFARIN SODIUM 5 MG, 1 TABLET DAILY MADE BY BARR LABS.^
     Route: 048
  2. WARFARIN SODIUM [Suspect]
     Indication: HYPERCOAGULATION
     Dosage: ^2.5 MG, 1 TABLET DAILY ALONG WITH WARFARIN SODIUM 5 MG, 1 TABLET DAILY MADE BY BARR LABS.^
     Route: 048
  3. WARFARIN SODIUM [Suspect]
  4. WARFARIN SODIUM [Suspect]
  5. SUSTIVA [Concomitant]
     Dates: start: 20040601
  6. VIREAD [Concomitant]
     Dates: start: 20040601
  7. VIDEX EC [Concomitant]
     Dates: start: 20040601
  8. PLAVIX [Concomitant]
     Dates: start: 20040601
  9. MEGESTROL [Concomitant]
     Dosage: DURATION= COUPLE OF MONTHS
  10. AMBIEN [Concomitant]
     Dosage: 1 TABLET AT BEDTIME FOR A COUPLE OF YEARS
  11. GEMFIBROZIL [Concomitant]
     Dosage: 1 TABLET TWICE DAILY FOR A COUPLE OF YEARS
  12. BACTRIM DS [Concomitant]
     Dosage: 1 TABLET DAILY FOR A COUPLE OF YEARS
  13. ISOSORBIDE MONONITRATE [Concomitant]
     Dates: start: 20030901
  14. PREVACID [Concomitant]
     Dosage: 1 TABLET TWICE DAILY FOR A COUPLE OF YEARS
  15. ASPIRIN [Concomitant]
     Dosage: 2 TABLETS DAILY FOR A COUPLE OF YEARS
  16. PAREGORIC [Concomitant]
     Dosage: DURATION = COUPLE OF MONTHS
     Route: 048
  17. ZOFRAN [Concomitant]
     Indication: VOMITING
  18. ZOFRAN [Concomitant]
     Indication: DIARRHOEA
  19. OXYCONTIN [Concomitant]
     Dosage: 1 TABLET EVERY 12 HOURS FOR COUPLE OF MONTHS
  20. VICODIN [Concomitant]
     Dosage: 1 TABLET EVERY 4-6 HOURS AS NEEDED
  21. DIAZEPAM [Concomitant]
     Dosage: 1 TABLET EVERY 12 HOURS FOR A COUPLE OF MONTHS
     Route: 048
  22. METOPROLOL [Concomitant]
     Dosage: 1/2 50 MG TABLET TWICE DAILY
     Route: 048
     Dates: start: 20030901
  23. ZITHROMAX [Concomitant]
     Dosage: 1200 MG WEEKLY FOR A COUPLE OF YEARS

REACTIONS (1)
  - INTERNATIONAL NORMALISED RATIO FLUCTUATION [None]
